FAERS Safety Report 8152199 (Version 2)
Quarter: 2013Q1

REPORT INFORMATION
  Report Type: Spontaneous
  Country: US (occurrence: US)
  Receive Date: 20110922
  Receipt Date: 20130117
  Transmission Date: 20140127
  Serious: No
  Sender: FDA-Public Use
  Company Number: US-ASTRAZENECA-2011SE04732

PATIENT
  Age: 57 Year
  Sex: Female
  Weight: 78.9 kg

DRUGS (5)
  1. NEXIUM [Suspect]
     Route: 048
  2. SEROQUEL XR [Suspect]
     Indication: BIPOLAR DISORDER
     Route: 048
     Dates: start: 201011, end: 201012
  3. SEROQUEL XR [Suspect]
     Indication: BIPOLAR I DISORDER
     Route: 048
     Dates: start: 201011, end: 201012
  4. SEROQUEL XR [Suspect]
     Indication: BIPOLAR DISORDER
     Route: 048
  5. SEROQUEL XR [Suspect]
     Indication: BIPOLAR I DISORDER
     Route: 048

REACTIONS (6)
  - Mania [Unknown]
  - Bipolar disorder [Unknown]
  - Tachyphrenia [Unknown]
  - Depressed mood [Unknown]
  - Insomnia [Unknown]
  - Drug dose omission [Unknown]
